FAERS Safety Report 9287262 (Version 3)
Quarter: 2013Q3

REPORT INFORMATION
  Report Type: Spontaneous
  Country: US (occurrence: US)
  Receive Date: 20130513
  Receipt Date: 20130707
  Transmission Date: 20140515
  Serious: Yes (Hospitalization)
  Sender: FDA-Public Use
  Company Number: US-B.I. PHARMACEUTICALS,INC./RIDGEFIELD-2013-BI-12943BP

PATIENT
  Age: 73 Year
  Sex: Male
  Weight: 103.87 kg

DRUGS (14)
  1. PRADAXA [Suspect]
     Indication: CEREBROVASCULAR ACCIDENT PROPHYLAXIS
     Dosage: 150 MG
     Route: 048
     Dates: start: 20111217, end: 201205
  2. PRADAXA [Suspect]
     Indication: ATRIAL FIBRILLATION
  3. ZOCOR [Concomitant]
     Dosage: 20 MG
  4. HUMULIN [Concomitant]
     Dosage: STRENGHT: 120 UNITS, DAILY DOSE: 240 UNITS
  5. OMEPRAZOLE [Concomitant]
     Dosage: 40 MG
  6. LASIX [Concomitant]
     Dosage: 80 MG
  7. AMLODIPINE [Concomitant]
     Dosage: 10 MG
  8. DUTASTERIDE [Concomitant]
     Dosage: 0.5 MG
  9. JANUVIA [Concomitant]
     Dosage: 100 MG
  10. CALCITRIOL [Concomitant]
     Dosage: 0.25 MCG
  11. SPIRONOLACTONE [Concomitant]
     Dosage: 25 MG
  12. TAMSULOSIN [Concomitant]
     Dosage: 0.4 MG
  13. LUMIGAN [Concomitant]
     Dosage: STRENGTH: .03% 1 DROP IN EACH EYE ONCE DAILY. DAILY DOSE: 1 DROP
  14. ASPIRIN [Concomitant]
     Dosage: 81 MG

REACTIONS (1)
  - Gastrointestinal haemorrhage [Recovered/Resolved]
